FAERS Safety Report 18623649 (Version 1)
Quarter: 2020Q4

REPORT INFORMATION
  Report Type: Spontaneous
  Country: AU (occurrence: AU)
  Receive Date: 20201216
  Receipt Date: 20201216
  Transmission Date: 20210114
  Serious: Yes (Life-Threatening)
  Sender: FDA-Public Use
  Company Number: AU-AMNEAL PHARMACEUTICALS-2020-AMRX-03882

PATIENT
  Age: 40 Year
  Sex: Male

DRUGS (1)
  1. IBUPROFEN. [Suspect]
     Active Substance: IBUPROFEN
     Indication: BACK PAIN
     Dosage: 1.4-2.0 G/DAY FOR 3 MONTHS)
     Route: 065

REACTIONS (3)
  - Hypokalaemia [Recovered/Resolved]
  - Overdose [Unknown]
  - Renal tubular acidosis [Recovered/Resolved]
